FAERS Safety Report 7919859-6 (Version None)
Quarter: 2011Q4

REPORT INFORMATION
  Report Type: 
  Country: None (occurrence: None)
  Receive Date: 20111115
  Receipt Date: 20111109
  Transmission Date: 20120403
  Serious: Yes (Life-Threatening)
  Sender: FDA-Public Use
  Company Number: 2011SP052824

PATIENT
  Age: 38 Year
  Sex: Female

DRUGS (1)
  1. LINESSA (DESOGESTREL/ETHINYLESTRADIOL /00570801/) [Suspect]
     Indication: CONTRACEPTION
     Dates: start: 20071231

REACTIONS (1)
  - PULMONARY EMBOLISM [None]
